FAERS Safety Report 15839141 (Version 3)
Quarter: 2022Q4

REPORT INFORMATION
  Report Type: Report from Study
  Country: DE (occurrence: DE)
  Receive Date: 20190117
  Receipt Date: 20221101
  Transmission Date: 20230112
  Serious: Yes (Death, Hospitalization)
  Sender: FDA-Public Use
  Company Number: DE-EMA-DD-20171212-KHAREEVHP-113656

PATIENT
  Age: 44 Year
  Sex: Female
  Weight: 64 kg

DRUGS (74)
  1. HYDROMORPHONE HYDROCHLORIDE [Suspect]
     Active Substance: HYDROMORPHONE HYDROCHLORIDE
     Indication: Malignant melanoma
     Dosage: 12 MG, DAILY (4 MG, TID)
     Route: 048
     Dates: start: 20180516
  2. HYDROMORPHONE HYDROCHLORIDE [Suspect]
     Active Substance: HYDROMORPHONE HYDROCHLORIDE
     Indication: Pain
     Dosage: 24 MG, DAILY (8 MG, TID)
     Route: 048
     Dates: start: 20180226
  3. HYDROMORPHONE HYDROCHLORIDE [Suspect]
     Active Substance: HYDROMORPHONE HYDROCHLORIDE
     Dosage: 8 MG, DAILY (8 MG, QD)
     Route: 048
     Dates: start: 20180225, end: 20180225
  4. HYDROMORPHONE HYDROCHLORIDE [Suspect]
     Active Substance: HYDROMORPHONE HYDROCHLORIDE
     Dosage: 12 MG, DAILY (4 MG, TID)
     Route: 048
     Dates: start: 20170707, end: 20180224
  5. HYDROMORPHONE HYDROCHLORIDE [Suspect]
     Active Substance: HYDROMORPHONE HYDROCHLORIDE
     Dosage: 8 MG, DAILY (4 MG, BID)
     Route: 048
     Dates: start: 20170407, end: 20170706
  6. TRAMETINIB [Suspect]
     Active Substance: TRAMETINIB
     Indication: Metastatic malignant melanoma
     Dosage: 2 MG, QD
     Route: 065
     Dates: start: 20161019, end: 20161114
  7. TRAMETINIB [Suspect]
     Active Substance: TRAMETINIB
     Dosage: 2 MG, QD
     Route: 065
     Dates: start: 20161117, end: 20161122
  8. TRAMETINIB [Suspect]
     Active Substance: TRAMETINIB
     Dosage: 2 MG, QD
     Route: 065
     Dates: start: 20161123, end: 20180513
  9. TAFINLAR [Suspect]
     Active Substance: DABRAFENIB MESYLATE
     Indication: Metastatic malignant melanoma
     Dosage: 150 MG, BID
     Route: 065
     Dates: start: 20161117, end: 20161122
  10. TAFINLAR [Suspect]
     Active Substance: DABRAFENIB MESYLATE
     Dosage: 150 MG, BID
     Route: 065
     Dates: start: 20161019, end: 20161114
  11. TAFINLAR [Suspect]
     Active Substance: DABRAFENIB MESYLATE
     Dosage: 150 MG, BID
     Route: 065
     Dates: start: 20161123, end: 20180513
  12. HYDROMORPHONE [Concomitant]
     Active Substance: HYDROMORPHONE
     Indication: Malignant melanoma
     Dosage: 1.3 MG, PRN (UPTO QD AS NEEDED, 2 HOUR MINIMUM IN BETWEEN)
     Route: 065
     Dates: start: 20170407
  13. SODIUM PICOSULFATE [Concomitant]
     Active Substance: SODIUM PICOSULFATE
     Indication: Malignant melanoma
     Dosage: 20 DRP, PRN
     Dates: start: 20180516
  14. SODIUM PICOSULFATE [Concomitant]
     Active Substance: SODIUM PICOSULFATE
     Dosage: 20 DROP, DAILY (20 GTT, QD)
     Route: 048
     Dates: start: 20170407, end: 20180225
  15. DEXAMETHASONE [Concomitant]
     Active Substance: DEXAMETHASONE
     Indication: Malignant melanoma
     Dosage: 4 MG, BID
     Dates: start: 20180304, end: 20180318
  16. DEXAMETHASONE [Concomitant]
     Active Substance: DEXAMETHASONE
     Indication: Intracranial pressure increased
     Dosage: 4 MG, TID
     Route: 048
     Dates: start: 20180302, end: 20180303
  17. DEXAMETHASONE [Concomitant]
     Active Substance: DEXAMETHASONE
     Indication: Intracranial pressure increased
     Dosage: 8 MG, TID
     Route: 042
     Dates: start: 20180226, end: 20180301
  18. DEXAMETHASONE [Concomitant]
     Active Substance: DEXAMETHASONE
     Dosage: 8 MG, QD
     Route: 042
     Dates: start: 20180225, end: 20180225
  19. DEXAMETHASONE [Concomitant]
     Active Substance: DEXAMETHASONE
     Dosage: 20 MG, QD
     Route: 042
     Dates: start: 20180225, end: 20180225
  20. DEXAMETHASONE [Concomitant]
     Active Substance: DEXAMETHASONE
     Dosage: 4 MG, QD
     Route: 048
     Dates: start: 20171129
  21. DEXAMETHASONE [Concomitant]
     Active Substance: DEXAMETHASONE
     Dosage: 4 MG, QD
     Route: 048
     Dates: start: 20170829, end: 20171128
  22. NALOXONE HYDROCHLORIDE\TILIDINE HYDROCHLORIDE [Concomitant]
     Active Substance: NALOXONE HYDROCHLORIDE\TILIDINE HYDROCHLORIDE
     Indication: Product used for unknown indication
     Dosage: 50 MG, QD (PRN)
     Dates: start: 20161115, end: 20170406
  23. CIPRALEX [Concomitant]
     Active Substance: ESCITALOPRAM OXALATE
     Indication: Depression
     Dosage: 10 MG, DAILY (10 MG, QD)
     Dates: start: 20180312
  24. CIPRALEX [Concomitant]
     Active Substance: ESCITALOPRAM OXALATE
     Dosage: 10 MG, DAILY (10 MG, QD)
     Route: 048
     Dates: start: 20170518, end: 20180228
  25. IBUPROFEN [Concomitant]
     Active Substance: IBUPROFEN
     Indication: Malignant melanoma
     Dosage: 600 MG, QD
     Dates: start: 20170214, end: 20170406
  26. MOVICOL                            /01625101/ [Concomitant]
     Indication: Product used for unknown indication
     Dosage: 13.81 G, DAILY (13.81 G, QD)
     Route: 048
     Dates: start: 20170829, end: 20171128
  27. PANTOPRAZOLE [Concomitant]
     Active Substance: PANTOPRAZOLE
     Indication: Malignant melanoma
     Dosage: 40 MG, QD
     Dates: start: 20170829
  28. MCP                                /00041901/ [Concomitant]
     Indication: Malignant melanoma
     Dosage: 30 MG, DAILY (10 MG, TID)
     Route: 048
     Dates: start: 20180228, end: 20180303
  29. MCP                                /00041901/ [Concomitant]
     Dosage: 15 MG, DAILY (5 MG, TID)
     Route: 048
     Dates: start: 20180227, end: 20180227
  30. MCP                                /00041901/ [Concomitant]
     Dosage: 10 MG, DAILY (5 MG, BID)
     Route: 048
     Dates: start: 20180226, end: 20180226
  31. MCP                                /00041901/ [Concomitant]
     Dosage: 30 MG, DAILY (10 MG, TID)
     Route: 048
     Dates: start: 20170118
  32. PREGABALIN [Concomitant]
     Active Substance: PREGABALIN
     Indication: Depressed mood
     Dosage: 75 MG, QD
     Dates: start: 20170829
  33. PREGABALIN [Concomitant]
     Active Substance: PREGABALIN
     Dosage: 75 MG, BID
     Route: 048
     Dates: start: 20180225
  34. PREGABALIN [Concomitant]
     Active Substance: PREGABALIN
     Dosage: 150 MG, QD
     Route: 048
     Dates: start: 20171129
  35. PREGABALIN [Concomitant]
     Active Substance: PREGABALIN
     Dosage: 75 MG, BID
     Route: 048
     Dates: start: 20170906, end: 20180224
  36. ORTOTON                            /00047901/ [Concomitant]
     Indication: Product used for unknown indication
     Dosage: 750 MG, UNK (750 MG, THREE TIMES AS NEEDED)
     Route: 048
     Dates: start: 20180516
  37. LACTULOSE [Concomitant]
     Active Substance: LACTULOSE
     Indication: Product used for unknown indication
     Dosage: 10 G, QD
     Dates: start: 20180312
  38. LACTULOSE [Concomitant]
     Active Substance: LACTULOSE
     Dosage: 10 G, QD
     Route: 048
     Dates: start: 20180225, end: 20180225
  39. IPILIMUMAB [Concomitant]
     Active Substance: IPILIMUMAB
     Indication: Malignant melanoma
     Dosage: 3 MG/KG, Q3W
     Dates: start: 20181024, end: 20181024
  40. CELEBREX [Concomitant]
     Active Substance: CELECOXIB
     Indication: Product used for unknown indication
     Dosage: 100 MG, QD
     Dates: start: 20180302
  41. ABSTRAL [Concomitant]
     Active Substance: FENTANYL CITRATE
     Indication: Malignant melanoma
     Dosage: 200 UG, QID
     Dates: start: 20180516
  42. LAXANS                             /00064401/ [Concomitant]
     Indication: Product used for unknown indication
     Dosage: 15 DROP, DAILY (15 DRP, QD)
     Route: 048
     Dates: start: 20180225, end: 20180303
  43. ZOFRAN                             /00955301/ [Concomitant]
     Indication: Malignant melanoma
     Dosage: 24 MG, DAILY (8 MG, TID)
     Route: 048
     Dates: start: 20180312
  44. ZOFRAN                             /00955301/ [Concomitant]
     Dosage: 4 MG, DAILY (4 MG, QD)
     Route: 048
     Dates: start: 20180303, end: 20180303
  45. ZOFRAN                             /00955301/ [Concomitant]
     Dosage: 4 MG, DAILY (4 MG, QD)
     Route: 048
     Dates: start: 20180302, end: 20180302
  46. ZOFRAN                             /00955301/ [Concomitant]
     Dosage: 12 MG, DAILY (4 MG, TID)
     Route: 042
     Dates: start: 20180227, end: 20180302
  47. ZOFRAN                             /00955301/ [Concomitant]
     Dosage: 8 MG, DAILY (4 MG, BID)
     Route: 042
     Dates: start: 20180226, end: 20180226
  48. ZOFRAN                             /00955301/ [Concomitant]
     Dosage: 8 MG, PRN (8 MG, PRN)
     Route: 048
     Dates: start: 20170308, end: 20180225
  49. ZOFRAN                             /00955301/ [Concomitant]
     Dosage: 16 MG, DAILY (8 MG, BID)
     Route: 048
     Dates: start: 20161115, end: 20170307
  50. PREGABALIN [Concomitant]
     Active Substance: PREGABALIN
     Indication: Product used for unknown indication
     Dosage: 100 MG, QD
     Dates: start: 20180225
  51. MIRTAZAPINE [Concomitant]
     Active Substance: MIRTAZAPINE
     Indication: Malignant melanoma
     Dosage: 15 MG, QD
     Dates: start: 20170920, end: 20170922
  52. MIRTAZAPINE [Concomitant]
     Active Substance: MIRTAZAPINE
     Indication: Product used for unknown indication
  53. NIVOLUMAB [Concomitant]
     Active Substance: NIVOLUMAB
     Indication: Malignant melanoma
     Dosage: 1 MG/KG, Q3W
     Dates: end: 20181024
  54. METAMIZOLE SODIUM [Concomitant]
     Active Substance: METAMIZOLE SODIUM
     Indication: Malignant melanoma
     Dosage: 1 G, TID
     Dates: start: 20180516
  55. METAMIZOLE SODIUM [Concomitant]
     Active Substance: METAMIZOLE SODIUM
     Dosage: 1000 MG, QD
     Route: 048
     Dates: start: 20170917, end: 20170917
  56. METAMIZOLE SODIUM [Concomitant]
     Active Substance: METAMIZOLE SODIUM
     Dosage: 100 MG, BID
     Route: 048
     Dates: start: 20170917, end: 20170917
  57. METAMIZOLE SODIUM [Concomitant]
     Active Substance: METAMIZOLE SODIUM
     Dosage: 1000 MG, TID
     Route: 048
     Dates: start: 20170829
  58. METAMIZOLE SODIUM [Concomitant]
     Active Substance: METAMIZOLE SODIUM
     Dosage: 100 MG, TID
     Route: 048
     Dates: start: 20170407, end: 20170916
  59. METAMIZOLE SODIUM [Concomitant]
     Active Substance: METAMIZOLE SODIUM
     Dosage: 500 MG, PRN
     Route: 048
     Dates: start: 20161115, end: 20170406
  60. PEMBROLIZUMAB [Concomitant]
     Active Substance: PEMBROLIZUMAB
     Indication: Malignant melanoma
     Dosage: 2 MG/KG, QD
     Dates: start: 20180517, end: 20181002
  61. MOVICOL [Concomitant]
     Active Substance: POLYETHYLENE GLYCOL 3350\POTASSIUM CHLORIDE\SODIUM BICARBONATE\SODIUM CHLORIDE
     Indication: Product used for unknown indication
     Dosage: 13.81 G, DAILY (13.81 G, QD)
     Dates: start: 20170829, end: 20171128
  62. MCP [Concomitant]
     Active Substance: METOCLOPRAMIDE HYDROCHLORIDE
     Indication: Malignant melanoma
     Dosage: 30 MG, DAILY (10 MG, TID)
     Dates: start: 20180228, end: 20180303
  63. MCP [Concomitant]
     Active Substance: METOCLOPRAMIDE HYDROCHLORIDE
     Dosage: 15 MG, DAILY (5 MG, TID)
     Dates: start: 20180227, end: 20180227
  64. MCP [Concomitant]
     Active Substance: METOCLOPRAMIDE HYDROCHLORIDE
     Dosage: 10 MG, DAILY (5 MG, BID)
     Dates: start: 20180226, end: 20180226
  65. MCP [Concomitant]
     Active Substance: METOCLOPRAMIDE HYDROCHLORIDE
     Dosage: 30 MG, DAILY (10 MG, TID)
     Dates: start: 20170118, end: 20180224
  66. Ortoton [Concomitant]
     Indication: Product used for unknown indication
     Dosage: 750 MG, UNK (750 MG, THREE TIMES AS NEEDED)
     Dates: start: 20180516
  67. Laxans [Concomitant]
     Indication: Product used for unknown indication
     Dosage: 15 DROP, DAILY (15 DRP, QD)
     Dates: start: 20180225, end: 20180303
  68. ZOFRAN [Concomitant]
     Active Substance: ONDANSETRON HYDROCHLORIDE
     Indication: Malignant melanoma
     Dosage: 24 MG, DAILY (8 MG, TID)
     Dates: start: 20180312
  69. ZOFRAN [Concomitant]
     Active Substance: ONDANSETRON HYDROCHLORIDE
     Dosage: 4 MG, DAILY (4 MG, QD)
     Dates: start: 20180303, end: 20180303
  70. ZOFRAN [Concomitant]
     Active Substance: ONDANSETRON HYDROCHLORIDE
     Dosage: 4 MG, DAILY (4 MG, QD)
     Dates: start: 20180302, end: 20180302
  71. ZOFRAN [Concomitant]
     Active Substance: ONDANSETRON HYDROCHLORIDE
     Dosage: 12 MG, DAILY (4 MG, TID)
     Dates: start: 20180227, end: 20180302
  72. ZOFRAN [Concomitant]
     Active Substance: ONDANSETRON HYDROCHLORIDE
     Dosage: 8 MG, DAILY (4 MG, BID)
     Dates: start: 20180226, end: 20180226
  73. ZOFRAN [Concomitant]
     Active Substance: ONDANSETRON HYDROCHLORIDE
     Dosage: 8 MG, PRN (8 MG, PRN)
     Dates: start: 20170308, end: 20180225
  74. ZOFRAN [Concomitant]
     Active Substance: ONDANSETRON HYDROCHLORIDE
     Dosage: 16 MG, DAILY (8 MG, BID)
     Dates: start: 20161115, end: 20170307

REACTIONS (10)
  - Metastatic malignant melanoma [Fatal]
  - Malignant neoplasm progression [Fatal]
  - Intracranial pressure increased [Recovered/Resolved]
  - Abdominal pain [Recovered/Resolved]
  - Ageusia [Not Recovered/Not Resolved]
  - Constipation [Recovered/Resolved]
  - Arthralgia [Not Recovered/Not Resolved]
  - Myalgia [Not Recovered/Not Resolved]
  - Dry skin [Not Recovered/Not Resolved]
  - Nausea [Unknown]

NARRATIVE: CASE EVENT DATE: 20170118
